FAERS Safety Report 6100371-4 (Version None)
Quarter: 2009Q1

REPORT INFORMATION
  Report Type: 
  Country: None (occurrence: None)
  Receive Date: 20090227
  Receipt Date: 20090227
  Transmission Date: 20090719
  Serious: No
  Sender: FDA-Public Use
  Company Number: None

PATIENT
  Sex: Male
  Weight: 71 kg

DRUGS (1)
  1. CISPLATIN [Suspect]
     Dosage: 390 MG
     Dates: end: 20081103

REACTIONS (3)
  - HYPOALBUMINAEMIA [None]
  - HYPONATRAEMIA [None]
  - LYMPHOPENIA [None]
